FAERS Safety Report 24658939 (Version 2)
Quarter: 2024Q4

REPORT INFORMATION
  Report Type: Spontaneous
  Country: US (occurrence: US)
  Receive Date: 20241125
  Receipt Date: 20241211
  Transmission Date: 20250115
  Serious: Yes (Other)
  Sender: TEVA
  Company Number: US-TEVA-VS-3265599

PATIENT
  Age: 32 Year
  Sex: Female

DRUGS (1)
  1. PROGLYCEM [Suspect]
     Active Substance: DIAZOXIDE
     Indication: Product used for unknown indication
     Route: 048

REACTIONS (3)
  - Road traffic accident [Unknown]
  - Product use issue [Unknown]
  - Prescription drug used without a prescription [Unknown]
